FAERS Safety Report 9965606 (Version 1)
Quarter: 2014Q1

REPORT INFORMATION
  Report Type: Report from Study
  Country: US (occurrence: US)
  Receive Date: 20140305
  Receipt Date: 20140305
  Transmission Date: 20141002
  Serious: No
  Sender: FDA-Public Use
  Company Number: US-ABBVIE-13P-163-1125589-00

PATIENT
  Age: 54 Year
  Sex: Male

DRUGS (6)
  1. HUMIRA [Suspect]
     Indication: RHEUMATOID ARTHRITIS
     Dates: start: 20130424
  2. HUMIRA [Suspect]
  3. METHOTREXATE [Concomitant]
     Indication: RHEUMATOID ARTHRITIS
     Dosage: 10 CAPSULES BY MOUTH EVERY MONDAY
     Route: 048
  4. FOLIC ACID [Concomitant]
     Indication: VITAMIN SUPPLEMENTATION
     Dosage: 10 TALETS EVERY TUESDAY
     Route: 048
  5. TOLMETIN SODIUM [Concomitant]
     Indication: ARTHRALGIA
  6. OXYCODONE [Concomitant]
     Indication: ARTHRALGIA
     Dosage: 5/325MG ONE BY MOUTH UP TO THREE TIMES A DAY AS NEEDED
     Route: 048

REACTIONS (1)
  - Urinary tract infection [Recovering/Resolving]
